FAERS Safety Report 12171170 (Version 4)
Quarter: 2020Q1

REPORT INFORMATION
  Report Type: Spontaneous
  Country: US (occurrence: US)
  Receive Date: 20160311
  Receipt Date: 20200309
  Transmission Date: 20200409
  Serious: Yes (Other)
  Sender: FDA-Public Use
  Company Number: US-ELI_LILLY_AND_COMPANY-US201602007475

PATIENT
  Age: 71 Year
  Sex: Male

DRUGS (7)
  1. CAFFEINE. [Interacting]
     Active Substance: CAFFEINE
     Indication: PRODUCT USED FOR UNKNOWN INDICATION
     Dosage: UNK, UNKNOWN
     Route: 065
  2. CIALIS [Interacting]
     Active Substance: TADALAFIL
     Dosage: 2.5 MG, UNKNOWN
     Route: 065
     Dates: end: 201901
  3. CIALIS [Suspect]
     Active Substance: TADALAFIL
     Indication: BENIGN PROSTATIC HYPERPLASIA
     Dosage: 5 MG, QD
     Route: 065
     Dates: start: 2016
  4. BYSTOLIC [Concomitant]
     Active Substance: NEBIVOLOL HYDROCHLORIDE
     Indication: HYPERTENSION
     Dosage: 2.5 MG, UNKNOWN
     Route: 065
  5. CINEOLE;MENTHOL;METHYL SALICYLATE;THYMOL [Interacting]
     Active Substance: EUCALYPTOL\MENTHOL\METHYL SALICYLATE\THYMOL
     Indication: PRODUCT USED FOR UNKNOWN INDICATION
     Dosage: UNK, UNKNOWN
     Route: 065
  6. ASA [Concomitant]
     Active Substance: ASPIRIN
     Indication: PRODUCT USED FOR UNKNOWN INDICATION
     Dosage: UNK, UNKNOWN
     Route: 065
  7. CIALIS [Interacting]
     Active Substance: TADALAFIL
     Dosage: 2.5 MG, UNKNOWN
     Route: 065

REACTIONS (13)
  - Deafness unilateral [Not Recovered/Not Resolved]
  - Neck pain [Recovered/Resolved]
  - Blood pressure increased [Unknown]
  - Vertigo [Unknown]
  - Influenza like illness [Recovered/Resolved]
  - Pain in extremity [Recovered/Resolved]
  - Heart rate increased [Unknown]
  - Expired product administered [Unknown]
  - Wrong technique in product usage process [Unknown]
  - Rhinorrhoea [Recovered/Resolved]
  - Malaise [Unknown]
  - Nasal congestion [Recovered/Resolved]
  - Drug interaction [Unknown]
